FAERS Safety Report 16549837 (Version 1)
Quarter: 2019Q3

REPORT INFORMATION
  Report Type: Spontaneous
  Country: IL (occurrence: IL)
  Receive Date: 20190710
  Receipt Date: 20190710
  Transmission Date: 20191004
  Serious: Yes (Other)
  Sender: FDA-Public Use
  Company Number: IL-TEVA-2019-IL-1073346

PATIENT
  Age: 30 Year
  Sex: Female

DRUGS (1)
  1. SYNTHOMYCINE 5% [Suspect]
     Active Substance: CHLORAMPHENICOL
     Indication: HORDEOLUM
     Route: 065

REACTIONS (10)
  - Eye swelling [Unknown]
  - Erythema [Unknown]
  - Expired product administered [Unknown]
  - Skin lesion [Unknown]
  - Eye pruritus [Unknown]
  - Pyrexia [Unknown]
  - Nausea [Unknown]
  - Chills [Unknown]
  - Hyperhidrosis [Unknown]
  - Diarrhoea [Unknown]
